FAERS Safety Report 9779905 (Version 2)
Quarter: 2014Q1

REPORT INFORMATION
  Report Type: Report from Study
  Country: US (occurrence: US)
  Receive Date: 20131223
  Receipt Date: 20140228
  Transmission Date: 20141002
  Serious: No
  Sender: FDA-Public Use
  Company Number: US-MYLANLABS-2013S1028329

PATIENT
  Age: 34 Year
  Sex: Female

DRUGS (2)
  1. AMNESTEEM CAPSULES [Suspect]
     Indication: ACNE
     Route: 048
     Dates: start: 201305, end: 20131111
  2. YAZ [Concomitant]
     Indication: ORAL CONTRACEPTION

REACTIONS (1)
  - Pregnancy test false positive [Recovered/Resolved]
